FAERS Safety Report 7024821-4 (Version None)
Quarter: 2010Q4

REPORT INFORMATION
  Report Type: 
  Country: None (occurrence: None)
  Receive Date: 20101001
  Receipt Date: 20100920
  Transmission Date: 20110411
  Serious: Yes (Life-Threatening, Other)
  Sender: FDA-Public Use
  Company Number: US-PFIZER INC-2010119237

PATIENT
  Sex: Male
  Weight: 74.83 kg

DRUGS (3)
  1. LYRICA [Suspect]
     Indication: NERVOUS SYSTEM DISORDER
     Dosage: UNK, 3X/DAY
     Route: 048
     Dates: start: 20100804, end: 20100812
  2. LYRICA [Suspect]
     Indication: NEUROPATHY PERIPHERAL
  3. OXYCODONE HCL AND ACETAMINOPHEN [Concomitant]
     Indication: ARTHRALGIA
     Dosage: 5/325MG
     Route: 048

REACTIONS (2)
  - MUSCLE SWELLING [None]
  - MYALGIA [None]
